FAERS Safety Report 26055844 (Version 1)
Quarter: 2025Q4

REPORT INFORMATION
  Report Type: Spontaneous
  Country: US (occurrence: US)
  Receive Date: 20251118
  Receipt Date: 20251118
  Transmission Date: 20260118
  Serious: Yes (Life-Threatening, Hospitalization)
  Sender: ACCORD
  Company Number: US-MLMSERVICE-20251029-PI690967-00336-1

PATIENT
  Age: 6 Year
  Sex: Male

DRUGS (1)
  1. ZOLEDRONIC ACID [Suspect]
     Active Substance: ZOLEDRONIC ACID
     Indication: Osteogenesis imperfecta
     Dosage: ACCIDENTAL OVERDOSE OF 10 MG ZOLEDRONIC ACID (ZA) VIA IV I
     Route: 042

REACTIONS (8)
  - Abdominal pain [Unknown]
  - Nausea [Unknown]
  - Sinus tachycardia [Unknown]
  - Hypocalcaemia [Unknown]
  - Hypophosphataemia [Unknown]
  - Blood albumin decreased [Unknown]
  - Accidental overdose [Unknown]
  - Off label use [Unknown]
